FAERS Safety Report 15041653 (Version 4)
Quarter: 2020Q3

REPORT INFORMATION
  Report Type: Report from Study
  Country: DE (occurrence: DE)
  Receive Date: 20180621
  Receipt Date: 20200701
  Transmission Date: 20201102
  Serious: Yes (Hospitalization, Other)
  Sender: FDA-Public Use
  Company Number: DE-GILEAD-2018-0344111

PATIENT
  Age: 61 Year
  Sex: Male
  Weight: 84.6 kg

DRUGS (1)
  1. LEDIPASVIR/SOFOSBUVIR [Suspect]
     Active Substance: LEDIPASVIR\SOFOSBUVIR
     Indication: CHRONIC HEPATITIS C
     Dosage: 1 DOSAGE FORM, QD
     Route: 048
     Dates: start: 20141127, end: 20150219

REACTIONS (5)
  - Diabetes mellitus [Unknown]
  - Laryngeal cancer recurrent [Unknown]
  - Benign prostatic hyperplasia [Unknown]
  - Hepatocellular carcinoma [Unknown]
  - Helicobacter gastritis [Unknown]

NARRATIVE: CASE EVENT DATE: 20190405
